FAERS Safety Report 9796418 (Version 1)
Quarter: 2014Q1

REPORT INFORMATION
  Report Type: Spontaneous
  Country: US (occurrence: US)
  Receive Date: 20140103
  Receipt Date: 20140103
  Transmission Date: 20141002
  Serious: No
  Sender: FDA-Public Use
  Company Number: US-GILEAD-2013-0091021

PATIENT
  Sex: Male

DRUGS (3)
  1. LETAIRIS [Suspect]
     Indication: PRODUCT USED FOR UNKNOWN INDICATION
     Dosage: 10 MG, QD
     Route: 048
     Dates: start: 20101117
  2. RIOCIGUAT [Concomitant]
     Dosage: 2 MG, TID
  3. LASIX                              /00032601/ [Concomitant]

REACTIONS (2)
  - Oedema [Unknown]
  - Local swelling [Unknown]
